FAERS Safety Report 8033559-6 (Version None)
Quarter: 2012Q1

REPORT INFORMATION
  Report Type: 
  Country: None (occurrence: None)
  Receive Date: 20120110
  Receipt Date: 20120103
  Transmission Date: 20120608
  Serious: Yes (Death, Life-Threatening, Hospitalization, Other)
  Sender: FDA-Public Use
  Company Number: FR-ELI_LILLY_AND_COMPANY-FR201108007590

PATIENT
  Sex: Male
  Weight: 70 kg

DRUGS (11)
  1. PREVISCAN [Concomitant]
     Indication: INTRACARDIAC THROMBUS
     Dosage: THREE QUATERS A TABLET ON EVEN DATES AND ONE QUARTER TABLET ON ODD DATES
     Dates: start: 20110317, end: 20110423
  2. NEXIUM [Concomitant]
     Dosage: 20 DAILY
  3. ASPIRIN [Concomitant]
     Indication: ACUTE CORONARY SYNDROME
     Dosage: 75 MG, QD
     Route: 048
     Dates: start: 20110324, end: 20110423
  4. EFFIENT [Suspect]
     Dosage: 10 MG, QD
     Route: 048
     Dates: start: 20110324, end: 20110423
  5. ATORVASTATIN CALCIUM [Concomitant]
     Dosage: 80 MG, QD
  6. HEPARIN [Concomitant]
     Indication: INTRACARDIAC THROMBUS
     Dosage: UNK
     Dates: start: 20110315, end: 20110317
  7. EFFIENT [Suspect]
     Indication: ACUTE CORONARY SYNDROME
     Dosage: 60 MG, SINGLE LOADING DOSE
     Route: 048
     Dates: start: 20110312
  8. INSPRA [Concomitant]
     Dosage: 25MG HALF DAILY
  9. PERINDOPRIL ERBUMINE [Concomitant]
     Dosage: 4 MG, QD
  10. BISOPROLOL FUMARATE [Concomitant]
     Dosage: 2.5 MG, QD
  11. FUROSEMIDE [Concomitant]
     Dosage: 20 MG, QD

REACTIONS (8)
  - CEREBELLAR HAEMATOMA [None]
  - PNEUMOCOCCAL INFECTION [None]
  - STAPHYLOCOCCAL INFECTION [None]
  - SEPTIC SHOCK [None]
  - ACUTE RESPIRATORY DISTRESS SYNDROME [None]
  - INTRACARDIAC THROMBUS [None]
  - VENTRICULAR HYPOKINESIA [None]
  - HAEMOPHILUS INFECTION [None]
